FAERS Safety Report 16625295 (Version 1)
Quarter: 2019Q3

REPORT INFORMATION
  Report Type: Spontaneous
  Country: IE (occurrence: IE)
  Receive Date: 20190724
  Receipt Date: 20190724
  Transmission Date: 20191004
  Serious: Yes (Other)
  Sender: FDA-Public Use
  Company Number: IE-AMREGENT-20191572

PATIENT
  Age: 19 Year
  Sex: Female

DRUGS (1)
  1. FERINJECT [Suspect]
     Active Substance: FERRIC CARBOXYMALTOSE
     Dosage: SINGLE DOSE OF 1000MG 1 IN 1 T
     Route: 041
     Dates: start: 20190611, end: 20190611

REACTIONS (7)
  - Nausea [Unknown]
  - Catheter site pain [Unknown]
  - Infusion site discomfort [Unknown]
  - Dizziness [Unknown]
  - Pain [Unknown]
  - Infusion site mass [Unknown]
  - Pain in extremity [Unknown]

NARRATIVE: CASE EVENT DATE: 20190611
